FAERS Safety Report 5111317-X (Version None)
Quarter: 2006Q3

REPORT INFORMATION
  Report Type: 
  Country: None (occurrence: None)
  Receive Date: 20060922
  Receipt Date: 20060109
  Transmission Date: 20061208
  Serious: No
  Sender: FDA-Public Use
  Company Number: US-GLAXOSMITHKLINE-A0588297A

PATIENT
  Age: 62 Year
  Sex: Female

DRUGS (1)
  1. ABREVA [Suspect]
     Route: 061
     Dates: start: 20060104

REACTIONS (5)
  - APPLICATION SITE DRYNESS [None]
  - APPLICATION SITE ERYTHEMA [None]
  - APPLICATION SITE ULCER [None]
  - CHAPPED LIPS [None]
  - LIP HAEMORRHAGE [None]
